FAERS Safety Report 12777580 (Version 2)
Quarter: 2016Q4

REPORT INFORMATION
  Report Type: Spontaneous
  Country: US (occurrence: US)
  Receive Date: 20160924
  Receipt Date: 20161110
  Transmission Date: 20170207
  Serious: No
  Sender: FDA-Public Use
  Company Number: US-B.I. PHARMACEUTICALS,INC./RIDGEFIELD-2016-BI-61750BP

PATIENT
  Sex: Male

DRUGS (3)
  1. PROPAFENONE. [Concomitant]
     Active Substance: PROPAFENONE
     Indication: CARDIAC DISORDER
     Route: 048
     Dates: start: 2008
  2. FLOMAX [Suspect]
     Active Substance: TAMSULOSIN HYDROCHLORIDE
     Indication: PROSTATOMEGALY
     Route: 048
     Dates: start: 2008, end: 2008
  3. CLONAZEPAM. [Concomitant]
     Active Substance: CLONAZEPAM
     Indication: SLEEP DISORDER
     Route: 048
     Dates: start: 1991

REACTIONS (1)
  - Nervous system disorder [Not Recovered/Not Resolved]

NARRATIVE: CASE EVENT DATE: 2014
